FAERS Safety Report 4531580-3 (Version None)
Quarter: 2004Q4

REPORT INFORMATION
  Report Type: 
  Country: None (occurrence: None)
  Receive Date: 20041220
  Receipt Date: 20041207
  Transmission Date: 20050328
  Serious: Yes (Other)
  Sender: FDA-Public Use
  Company Number: PHHO2004NL17327

PATIENT
  Age: 59 Year
  Sex: Male

DRUGS (1)
  1. LESCOL [Suspect]
     Dosage: UNK, UNK
     Dates: start: 20040407, end: 20040710

REACTIONS (2)
  - ADVERSE DRUG REACTION [None]
  - DRUG INTOLERANCE [None]
